FAERS Safety Report 5794497-2 (Version None)
Quarter: 2008Q2

REPORT INFORMATION
  Report Type: 
  Country: None (occurrence: None)
  Receive Date: 20080626
  Receipt Date: 20080613
  Transmission Date: 20081010
  Serious: Yes (Death)
  Sender: FDA-Public Use
  Company Number: CLOF-1000208

PATIENT
  Age: 6 Year
  Sex: Female

DRUGS (7)
  1. CLOFARABINE (CLOFARABINE) SOLUTION FOR INFUSION [Suspect]
     Indication: ACUTE LYMPHOCYTIC LEUKAEMIA
     Dosage: 40 MG/M2, QDX5, INTRAVENOUS
     Route: 042
     Dates: start: 20080503, end: 20080507
  2. CYCLOPHOSPHAMIDE [Suspect]
     Indication: ACUTE LYMPHOCYTIC LEUKAEMIA
     Dates: start: 20080503, end: 20080507
  3. ETOPOSIDE [Suspect]
     Indication: ACUTE LYMPHOCYTIC LEUKAEMIA
     Dates: start: 20080503, end: 20080507
  4. CIPRO [Concomitant]
  5. PIPERACILLIN [Concomitant]
  6. ONDANSETRON HYDROCHLORIDE [Concomitant]
  7. OMEPRAZOLE [Concomitant]

REACTIONS (9)
  - ABDOMINAL DISTENSION [None]
  - CHEST DISCOMFORT [None]
  - GENERAL PHYSICAL HEALTH DETERIORATION [None]
  - HAEMODYNAMIC INSTABILITY [None]
  - HYPONATRAEMIA [None]
  - ILEUS PARALYTIC [None]
  - RENAL FAILURE [None]
  - RENAL TUBULAR DISORDER [None]
  - STATUS EPILEPTICUS [None]
